FAERS Safety Report 7473378-2 (Version None)
Quarter: 2011Q1

REPORT INFORMATION
  Report Type: 
  Country: None (occurrence: None)
  Receive Date: 20110302
  Receipt Date: 20100803
  Transmission Date: 20110831
  Serious: Yes (Hospitalization, Other)
  Sender: FDA-Public Use
  Company Number: 163-21880-10070073

PATIENT
  Age: 64 Year
  Sex: Male
  Weight: 119.296 kg

DRUGS (15)
  1. REVLIMID [Suspect]
     Indication: MULTIPLE MYELOMA
     Dosage: 25 MG, DAILY X 14 DAYS EVERY 21 DAYS, PO
     Route: 048
     Dates: start: 20100407
  2. SENNA (SENNA) [Concomitant]
  3. MORPHINE SR (MORPHINE) [Concomitant]
  4. VELCADE [Suspect]
     Indication: MULTIPLE MYELOMA
     Dosage: 1.3 MG/M2, DAYS 1,4,8, AND 11, SC
     Route: 058
  5. CRESTOR [Concomitant]
  6. FLUCONAZOLE [Concomitant]
  7. FLONASE [Concomitant]
  8. METOPROLOL TARTRATE [Concomitant]
  9. CALCIUM + VIT D (CALCIUM D3 ^STADA^) [Concomitant]
  10. ALLOPURINOL [Concomitant]
  11. DECADRON [Concomitant]
  12. MORPHINE [Concomitant]
  13. LASIX [Concomitant]
  14. MAG OXIDE (MAGNESIUM OXIDE) [Concomitant]
  15. INDOMETHACIN [Concomitant]

REACTIONS (13)
  - THROMBOCYTOPENIA [None]
  - DIARRHOEA [None]
  - HYPOKALAEMIA [None]
  - FALL [None]
  - FATIGUE [None]
  - SKIN NECROSIS [None]
  - BLOOD MAGNESIUM DECREASED [None]
  - HYPOCALCAEMIA [None]
  - HYPOTENSION [None]
  - ASTHENIA [None]
  - DEHYDRATION [None]
  - PANCYTOPENIA [None]
  - CONSTIPATION [None]
